FAERS Safety Report 6400867-1 (Version None)
Quarter: 2009Q4

REPORT INFORMATION
  Report Type: 
  Country: None (occurrence: None)
  Receive Date: 20091009
  Receipt Date: 20090928
  Transmission Date: 20100525
  Serious: Yes (Hospitalization)
  Sender: FDA-Public Use
  Company Number: 230850J09USA

PATIENT
  Age: 49 Year
  Sex: Female

DRUGS (3)
  1. REBIF [Suspect]
     Indication: MULTIPLE SCLEROSIS
     Dosage: 44 MCG, 3 IN 1 WEEKS, SUBCUTANEOUS
     Route: 058
     Dates: start: 20071101
  2. HYDROCODONE (HYDROCODONE) [Concomitant]
  3. SIMVASTATIN [Concomitant]

REACTIONS (3)
  - BLINDNESS UNILATERAL [None]
  - MULTIPLE SCLEROSIS RELAPSE [None]
  - PULSE ABSENT [None]
